FAERS Safety Report 16777389 (Version 3)
Quarter: 2019Q3

REPORT INFORMATION
  Report Type: Spontaneous
  Country: NL (occurrence: DE)
  Receive Date: 20190905
  Receipt Date: 20190923
  Transmission Date: 20191005
  Serious: Yes (Hospitalization, Other)
  Sender: FDA-Public Use
  Company Number: DE-FRESENIUS KABI-FK201909594

PATIENT
  Sex: Female
  Weight: 103 kg

DRUGS (17)
  1. DOXYCYCLINE. [Suspect]
     Active Substance: DOXYCYCLINE
     Indication: PRODUCT USED FOR UNKNOWN INDICATION
     Dosage: UNK
     Route: 065
  2. IODINE. [Suspect]
     Active Substance: IODINE
     Indication: GOITRE
     Dosage: 200 MG, QD
     Route: 048
  3. FISH OIL [Concomitant]
     Active Substance: FISH OIL
     Indication: PRODUCT USED FOR UNKNOWN INDICATION
     Dosage: UNK
     Route: 065
  4. VALSARTAN. [Suspect]
     Active Substance: VALSARTAN
     Dosage: 80 MG, UNK (IN THE MORNINGS)
     Route: 065
     Dates: start: 20141202, end: 201808
  5. CLARITHROMYCIN. [Suspect]
     Active Substance: CLARITHROMYCIN
     Indication: PRODUCT USED FOR UNKNOWN INDICATION
     Dosage: UNK
     Route: 065
  6. DICLOFENAC [Suspect]
     Active Substance: DICLOFENAC
     Indication: PRODUCT USED FOR UNKNOWN INDICATION
     Dosage: UNK
     Route: 065
  7. HEPARIN SODIUM. [Concomitant]
     Active Substance: HEPARIN SODIUM
     Indication: LYMPHADENECTOMY
     Dosage: UNK
     Route: 005
  8. AGOMELATINE [Concomitant]
     Active Substance: AGOMELATINE
     Indication: PRODUCT USED FOR UNKNOWN INDICATION
     Dosage: 25 MG, QD (MORNING)
     Route: 065
     Dates: start: 20120116
  9. PANTOPRAZOLE SODIUM SESQUIHYDRATE [Concomitant]
     Active Substance: PANTOPRAZOLE SODIUM
     Indication: PRODUCT USED FOR UNKNOWN INDICATION
     Route: 065
  10. VALSARTAN. [Suspect]
     Active Substance: VALSARTAN
     Indication: HYPERTENSION
     Dosage: 92.5 MG, UNK (IN THE MORNINGS)
     Route: 065
     Dates: start: 2006
  11. BENZYLPENICILLIN [Suspect]
     Active Substance: PENICILLIN G
     Indication: PRODUCT USED FOR UNKNOWN INDICATION
     Dosage: UNK
     Route: 065
  12. PROPOFOL (MANUFACTURER UNKNOWN) [Suspect]
     Active Substance: PROPOFOL
     Indication: PRODUCT USED FOR UNKNOWN INDICATION
     Dosage: UNK
     Route: 065
  13. OLMESARTAN MEDOXOMIL. [Concomitant]
     Active Substance: OLMESARTAN MEDOXOMIL
     Indication: PRODUCT USED FOR UNKNOWN INDICATION
     Dosage: 0.5 DF, QD (10MG) MORNING
     Route: 065
     Dates: start: 2005
  14. IBUPROFEN. [Concomitant]
     Active Substance: IBUPROFEN
     Indication: PRODUCT USED FOR UNKNOWN INDICATION
     Route: 065
  15. VALSARTAN. [Suspect]
     Active Substance: VALSARTAN
     Route: 065
  16. HYDROCHLOROTHIAZIDE. [Concomitant]
     Active Substance: HYDROCHLOROTHIAZIDE
     Indication: PRODUCT USED FOR UNKNOWN INDICATION
     Dosage: 125 OT, UNK
     Route: 048
  17. ZINC SULFATE. [Concomitant]
     Active Substance: ZINC SULFATE
     Indication: PRODUCT USED FOR UNKNOWN INDICATION
     Dosage: UNK
     Route: 065

REACTIONS (31)
  - Lymphoedema [Unknown]
  - Pain [Recovering/Resolving]
  - Thrombosis [Unknown]
  - Osteoarthritis [Not Recovered/Not Resolved]
  - Constipation [Unknown]
  - Asthenia [Unknown]
  - Myelopathy [Unknown]
  - Polyarthritis [Not Recovered/Not Resolved]
  - Lipoedema [Unknown]
  - Pollakiuria [Unknown]
  - Drug hypersensitivity [Unknown]
  - Bladder spasm [Unknown]
  - Endometrial cancer [Not Recovered/Not Resolved]
  - Fistula discharge [Recovering/Resolving]
  - Fibromyalgia [Unknown]
  - General physical health deterioration [Unknown]
  - Micturition urgency [Unknown]
  - Vaginal haemorrhage [Not Recovered/Not Resolved]
  - Spinal cord disorder [Unknown]
  - Carpal tunnel syndrome [Unknown]
  - Procedural complication [Unknown]
  - Anal incontinence [Recovering/Resolving]
  - Urinary tract infection enterococcal [Recovered/Resolved]
  - Fatigue [Unknown]
  - Back pain [Unknown]
  - Sneezing [Unknown]
  - Sleep disorder [Unknown]
  - Spinal pain [Unknown]
  - Urinary incontinence [Recovering/Resolving]
  - Dysuria [Recovered/Resolved]
  - Cough [Unknown]

NARRATIVE: CASE EVENT DATE: 2006
